FAERS Safety Report 19658820 (Version 1)
Quarter: 2021Q3

REPORT INFORMATION
  Report Type: Spontaneous
  Country: CA (occurrence: CA)
  Receive Date: 20210804
  Receipt Date: 20210804
  Transmission Date: 20211014
  Serious: Yes (Death, Hospitalization, Other)
  Sender: FDA-Public Use
  Company Number: CA-GILEAD-2021-0542984

PATIENT
  Age: 70 Year
  Sex: Male

DRUGS (1)
  1. YESCARTA [Suspect]
     Active Substance: AXICABTAGENE CILOLEUCEL
     Indication: NON-HODGKIN^S LYMPHOMA REFRACTORY
     Dosage: UNK
     Route: 042
     Dates: start: 20210526, end: 20210526

REACTIONS (6)
  - Immune effector cell-associated neurotoxicity syndrome [Recovering/Resolving]
  - Neutropenia [Fatal]
  - Haemophagocytic lymphohistiocytosis [Unknown]
  - Septic shock [Fatal]
  - Cytokine release syndrome [Recovered/Resolved]
  - Coagulopathy [Unknown]

NARRATIVE: CASE EVENT DATE: 20210527
